FAERS Safety Report 14334643 (Version 1)
Quarter: 2017Q4

REPORT INFORMATION
  Report Type: Spontaneous
  Country: CA (occurrence: CA)
  Receive Date: 20171228
  Receipt Date: 20171228
  Transmission Date: 20180321
  Serious: Yes (Other)
  Sender: FDA-Public Use
  Company Number: CA-CELGENEUS-CAN-20171208619

PATIENT
  Sex: Female

DRUGS (3)
  1. OTEZLA [Suspect]
     Active Substance: APREMILAST
     Indication: PSORIATIC ARTHROPATHY
     Dosage: 60 MILLIGRAM
     Route: 048
     Dates: start: 20171109, end: 20171204
  2. STELARA [Concomitant]
     Active Substance: USTEKINUMAB
     Indication: PRODUCT USED FOR UNKNOWN INDICATION
     Route: 065
     Dates: start: 20170401, end: 20170914
  3. OTEZLA [Suspect]
     Active Substance: APREMILAST
     Dosage: 60 MILLIGRAM
     Route: 048
     Dates: start: 20171220

REACTIONS (1)
  - Tonsillar inflammation [Unknown]

NARRATIVE: CASE EVENT DATE: 2017
